FAERS Safety Report 8816048 (Version 1)
Quarter: 2012Q4

REPORT INFORMATION
  Report Type: 
  Country: US (occurrence: US)
  Receive Date: 20120928
  Receipt Date: 20120928
  Transmission Date: 20130627
  Serious: Yes (Other)
  Sender: FDA-Public Use
  Company Number: US-PFIZER INC-2012239371

PATIENT
  Sex: Female

DRUGS (1)
  1. EFFEXOR [Suspect]
     Dosage: UNK

REACTIONS (7)
  - Drug dependence [Unknown]
  - Headache [Unknown]
  - Uterine disorder [Unknown]
  - Vertigo [Unknown]
  - Nausea [Unknown]
  - Anxiety [Unknown]
  - Gastrointestinal disorder [Unknown]
